FAERS Safety Report 6317706-X (Version None)
Quarter: 2009Q3

REPORT INFORMATION
  Report Type: 
  Country: None (occurrence: None)
  Receive Date: 20090820
  Receipt Date: 20090820
  Transmission Date: 20100115
  Serious: Yes (Other)
  Sender: FDA-Public Use
  Company Number: None

PATIENT
  Age: 31 Year
  Sex: Female
  Weight: 53.0709 kg

DRUGS (1)
  1. AMPHETAMINE SALTS 20MG BARR [Suspect]
     Indication: ATTENTION DEFICIT/HYPERACTIVITY DISORDER
     Dosage: 1 2X DAY PO
     Route: 048
     Dates: start: 20090801, end: 20090818

REACTIONS (7)
  - ABDOMINAL DISCOMFORT [None]
  - ANXIETY [None]
  - BRUXISM [None]
  - INSOMNIA [None]
  - NECK PAIN [None]
  - PAIN IN JAW [None]
  - TREMOR [None]
